FAERS Safety Report 11078941 (Version 2)
Quarter: 2015Q2

REPORT INFORMATION
  Report Type: Spontaneous
  Country: US (occurrence: None)
  Receive Date: 20150428
  Receipt Date: 20150501
  Transmission Date: 20150821
  Serious: Yes (Death)
  Sender: FDA-Public Use
  Company Number: PIN-2015-00017

PATIENT
  Age: 61 Year
  Sex: Female

DRUGS (1)
  1. PHOTOFRIN [Suspect]
     Active Substance: PORFIMER SODIUM
     Indication: NON-SMALL CELL LUNG CANCER
     Dates: start: 20150413, end: 20150413

REACTIONS (1)
  - Death [None]

NARRATIVE: CASE EVENT DATE: 201504
